FAERS Safety Report 7204621-2 (Version None)
Quarter: 2010Q4

REPORT INFORMATION
  Report Type: 
  Country: None (occurrence: None)
  Receive Date: 20101230
  Receipt Date: 20101224
  Transmission Date: 20110411
  Serious: Yes (Other)
  Sender: FDA-Public Use
  Company Number: JP-MERCK-1012USA03897

PATIENT
  Age: 73 Year
  Sex: Male

DRUGS (9)
  1. JANUVIA [Suspect]
     Indication: TYPE 2 DIABETES MELLITUS
     Route: 048
     Dates: start: 20100913, end: 20101209
  2. ASPIRIN [Concomitant]
     Route: 065
  3. ATELEC [Concomitant]
     Route: 065
  4. LIPITOR [Concomitant]
     Route: 065
  5. ZYLORIC [Concomitant]
     Route: 065
  6. PARIET [Concomitant]
     Route: 065
  7. LASIX [Concomitant]
     Route: 065
  8. TENORMIN [Concomitant]
     Route: 065
  9. CARDENALIN [Concomitant]
     Route: 065

REACTIONS (1)
  - BRADYCARDIA [None]
